FAERS Safety Report 25315532 (Version 1)
Quarter: 2025Q2

REPORT INFORMATION
  Report Type: Spontaneous
  Country: US (occurrence: US)
  Receive Date: 20250514
  Receipt Date: 20250514
  Transmission Date: 20250717
  Serious: No
  Sender: ENDO
  Company Number: US-ENDO USA, INC.-2024-050762

PATIENT

DRUGS (1)
  1. NEOSTIGMINE METHYLSULFATE [Suspect]
     Active Substance: NEOSTIGMINE METHYLSULFATE
     Indication: Product used for unknown indication
     Route: 051

REACTIONS (2)
  - Therapeutic response delayed [Unknown]
  - Product quality issue [Unknown]
